FAERS Safety Report 16656599 (Version 2)
Quarter: 2019Q3

REPORT INFORMATION
  Report Type: Report from Study
  Country: DE (occurrence: DE)
  Receive Date: 20190801
  Receipt Date: 20190806
  Transmission Date: 20191004
  Serious: Yes (Other)
  Sender: FDA-Public Use
  Company Number: DE-MYLANLABS-2019M1070938

PATIENT
  Age: 67 Year
  Sex: Male
  Weight: 89 kg

DRUGS (5)
  1. XYLONEST [Concomitant]
     Active Substance: PRILOCAINE HYDROCHLORIDE
     Dosage: UNK
     Dates: start: 20190107
  2. GABAPENTIN. [Suspect]
     Active Substance: GABAPENTIN
     Indication: NEURITIS
     Dosage: 300 MILLIGRAM, QD
     Route: 065
  3. TRAIM [Concomitant]
     Indication: NEURITIS
     Dosage: 20 MILLIGRAM
     Dates: start: 20150107
  4. GABAPENTIN. [Suspect]
     Active Substance: GABAPENTIN
     Dosage: 900 MILLIGRAM, QD
     Route: 065
     Dates: start: 20190107
  5. RAMIPRIL. [Concomitant]
     Active Substance: RAMIPRIL
     Indication: HYPERTENSION
     Dosage: 5 MG, UNK
     Route: 065
     Dates: start: 20150501

REACTIONS (1)
  - Syncope [Recovered/Resolved]

NARRATIVE: CASE EVENT DATE: 20190214
